FAERS Safety Report 7833570-1 (Version None)
Quarter: 2011Q4

REPORT INFORMATION
  Report Type: 
  Country: None (occurrence: None)
  Receive Date: 20111024
  Receipt Date: 20111010
  Transmission Date: 20120403
  Serious: Yes (Death, Congenital Anomaly)
  Sender: FDA-Public Use
  Company Number: CA-MYLANLABS-2011S1021480

PATIENT
  Sex: Male

DRUGS (2)
  1. ALLOPURINOL [Suspect]
     Indication: NEPHROLITHIASIS
     Dosage: 300 MG/DAY
     Route: 064
  2. METHYLDOPA [Concomitant]
     Indication: HYPERTENSION
     Route: 064

REACTIONS (18)
  - MICROPHTHALMOS [None]
  - RESPIRATORY FAILURE [None]
  - COLOBOMA [None]
  - HYDROCEPHALUS [None]
  - CLEFT PALATE [None]
  - MICROTIA [None]
  - CLEFT LIP [None]
  - CARDIAC FAILURE [None]
  - MATERNAL EXPOSURE DURING PREGNANCY [None]
  - DIAPHRAGMATIC HERNIA [None]
  - MICROGNATHIA [None]
  - CONGENITAL CENTRAL NERVOUS SYSTEM ANOMALY [None]
  - SINGLE FUNCTIONAL KIDNEY [None]
  - PULMONARY HYPOPLASIA [None]
  - EAR MALFORMATION [None]
  - HYPERTELORISM OF ORBIT [None]
  - CRYPTORCHISM [None]
  - OPTIC ATROPHY [None]
